FAERS Safety Report 18295094 (Version 2)
Quarter: 2020Q4

REPORT INFORMATION
  Report Type: Spontaneous
  Country: US (occurrence: US)
  Receive Date: 20200922
  Receipt Date: 20201215
  Transmission Date: 20210113
  Serious: No
  Sender: FDA-Public Use
  Company Number: US-GLOBAL BLOOD THERAPEUTICS INC-US-GBT-20-02078

PATIENT
  Age: 35 Year
  Sex: Male

DRUGS (1)
  1. OXBRYTA [Suspect]
     Active Substance: VOXELOTOR
     Indication: SICKLE CELL DISEASE
     Route: 048
     Dates: start: 20200630

REACTIONS (4)
  - Sickle cell anaemia with crisis [Recovering/Resolving]
  - Product dose omission issue [Unknown]
  - Headache [Recovering/Resolving]
  - Sickle cell anaemia with crisis [Not Recovered/Not Resolved]

NARRATIVE: CASE EVENT DATE: 2020
